FAERS Safety Report 9792910 (Version 1)
Quarter: 2014Q1

REPORT INFORMATION
  Report Type: Report from Study
  Country: US (occurrence: US)
  Receive Date: 20140102
  Receipt Date: 20140102
  Transmission Date: 20141002
  Serious: Yes (Hospitalization)
  Sender: FDA-Public Use
  Company Number: US-PURDUE-USA-2013-0109875

PATIENT
  Sex: Female

DRUGS (2)
  1. OXY CR TAB [Suspect]
     Indication: ARTHRITIS
     Dosage: 40 MG, BID
     Route: 048
     Dates: start: 2011
  2. OXY CR TAB [Suspect]
     Indication: FIBROMYALGIA

REACTIONS (1)
  - Pneumonia [Recovered/Resolved]
